FAERS Safety Report 4317960-X (Version None)
Quarter: 2004Q1

REPORT INFORMATION
  Report Type: 
  Country: None (occurrence: None)
  Receive Date: 20040316
  Receipt Date: 20040303
  Transmission Date: 20041129
  Serious: Yes (Disabling)
  Sender: FDA-Public Use
  Company Number: DK-GLAXOSMITHKLINE-B0325421A

PATIENT
  Age: 14 Year
  Sex: Female

DRUGS (1)
  1. ZYBAN [Suspect]
     Route: 048
     Dates: start: 20040121, end: 20040210

REACTIONS (4)
  - ARTHRALGIA [None]
  - JOINT SWELLING [None]
  - LYMPHADENOPATHY [None]
  - URTICARIA [None]
